FAERS Safety Report 7010821-7 (Version None)
Quarter: 2010Q3

REPORT INFORMATION
  Report Type: 
  Country: None (occurrence: None)
  Receive Date: 20100923
  Receipt Date: 20100923
  Transmission Date: 20110219
  Serious: Yes (Other)
  Sender: FDA-Public Use
  Company Number: None

PATIENT
  Sex: Female
  Weight: 72.5755 kg

DRUGS (3)
  1. SUMAVEL DOSEPRO [Suspect]
     Indication: MIGRAINE
     Dosage: 6 MG PER DOSE PRN MIGRAINES SQ
     Route: 058
  2. TOPAMAX [Concomitant]
  3. TREXIMET [Concomitant]

REACTIONS (4)
  - CHEST PAIN [None]
  - PALPITATIONS [None]
  - PYREXIA [None]
  - VIRAL INFECTION [None]
